FAERS Safety Report 16703863 (Version 1)
Quarter: 2019Q3

REPORT INFORMATION
  Report Type: Spontaneous
  Country: US (occurrence: US)
  Receive Date: 20190814
  Receipt Date: 20190814
  Transmission Date: 20191004
  Serious: Yes (Other)
  Sender: FDA-Public Use
  Company Number: US-FRESENIUS KABI-FK201908980

PATIENT
  Age: 67 Year
  Sex: Female

DRUGS (4)
  1. OLARATUMAB [Suspect]
     Active Substance: OLARATUMAB
     Indication: LEIOMYOSARCOMA RECURRENT
     Route: 065
  2. TRABECTEDIN [Suspect]
     Active Substance: TRABECTEDIN
     Indication: LEIOMYOSARCOMA RECURRENT
     Route: 065
  3. PAZOPANIB [Suspect]
     Active Substance: PAZOPANIB
     Indication: LEIOMYOSARCOMA RECURRENT
     Route: 065
  4. DOXORUBICIN (MANUFACTURER UNKNOWN) [Suspect]
     Active Substance: DOXORUBICIN
     Indication: LEIOMYOSARCOMA RECURRENT
     Route: 065

REACTIONS (1)
  - Cardiac failure [Recovered/Resolved]
